FAERS Safety Report 7582652-0 (Version None)
Quarter: 2011Q2

REPORT INFORMATION
  Report Type: 
  Country: None (occurrence: None)
  Receive Date: 20110630
  Receipt Date: 20110628
  Transmission Date: 20111010
  Serious: No
  Sender: FDA-Public Use
  Company Number: US-PFIZER INC-2011144780

PATIENT
  Sex: Female
  Weight: 66.667 kg

DRUGS (2)
  1. PRILOSEC [Concomitant]
     Dosage: UNK
  2. ADVIL LIQUI-GELS [Suspect]
     Indication: MIGRAINE
     Dosage: 400 MG, 1X/DAY
     Route: 048
     Dates: start: 20110601

REACTIONS (1)
  - NAUSEA [None]
